FAERS Safety Report 6591425-7 (Version None)
Quarter: 2010Q1

REPORT INFORMATION
  Report Type: 
  Country: None (occurrence: None)
  Receive Date: 20100219
  Receipt Date: 20100211
  Transmission Date: 20100710
  Serious: Yes (Hospitalization)
  Sender: FDA-Public Use
  Company Number: US-WATSON-2010-01706

PATIENT
  Age: 42 Year
  Sex: Female

DRUGS (2)
  1. BUPROPION HCL [Suspect]
     Indication: DEPRESSION
     Dosage: 1 TABLET, DAILY
     Route: 048
     Dates: start: 20100120, end: 20100212
  2. BUPROPION HCL [Suspect]
     Dosage: 1 TABLET, DAILY
     Route: 048
     Dates: start: 20091101, end: 20100120

REACTIONS (5)
  - BLOOD PRESSURE INCREASED [None]
  - CHEST PAIN [None]
  - DYSPNOEA [None]
  - MUSCLE SPASMS [None]
  - MUSCLE TWITCHING [None]
